FAERS Safety Report 21322723 (Version 2)
Quarter: 2022Q3

REPORT INFORMATION
  Report Type: Spontaneous
  Country: IT (occurrence: IT)
  Receive Date: 20220912
  Receipt Date: 20220915
  Transmission Date: 20221027
  Serious: Yes (Other)
  Sender: FDA-Public Use
  Company Number: IT-NOVARTISPH-NVSC2022IT204679

PATIENT
  Age: 70 Year
  Sex: Male

DRUGS (1)
  1. PIOGLITAZONE [Suspect]
     Active Substance: PIOGLITAZONE
     Indication: Product used for unknown indication
     Dosage: 1 DOSAGE FORM (28 TABLETS) IT
     Route: 065

REACTIONS (2)
  - Hypothermia [Unknown]
  - Heart rate decreased [Unknown]
